FAERS Safety Report 9740153 (Version 2)
Quarter: 2014Q1

REPORT INFORMATION
  Report Type: Spontaneous
  Country: US (occurrence: US)
  Receive Date: 20131209
  Receipt Date: 20140103
  Transmission Date: 20141002
  Serious: No
  Sender: FDA-Public Use
  Company Number: US-BAYER-2013-149964

PATIENT
  Age: 19 Year
  Sex: Female

DRUGS (1)
  1. MIRENA [Suspect]
     Indication: CONTRACEPTION
     Dosage: 20 MCG/24HR, CONT
     Route: 015
     Dates: start: 20130328, end: 201309

REACTIONS (7)
  - Device expulsion [None]
  - Back pain [None]
  - Adnexa uteri pain [None]
  - Abdominal pain [None]
  - Pelvic pain [None]
  - Menorrhagia [None]
  - Menstruation irregular [None]
